FAERS Safety Report 17028335 (Version 7)
Quarter: 2020Q3

REPORT INFORMATION
  Report Type: Spontaneous
  Country: US (occurrence: US)
  Receive Date: 20191113
  Receipt Date: 20200817
  Transmission Date: 20201102
  Serious: Yes (Other)
  Sender: FDA-Public Use
  Company Number: US-ACTELION-A-US2019-197967

PATIENT
  Age: 59 Year
  Sex: Female
  Weight: 58.5 kg

DRUGS (4)
  1. TADALAFIL. [Concomitant]
     Active Substance: TADALAFIL
  2. OPSUMIT [Suspect]
     Active Substance: MACITENTAN
     Indication: PULMONARY HYPERTENSION
     Dosage: 10 MG, QD
     Route: 048
  3. AUGMENTIN [Suspect]
     Active Substance: AMOXICILLIN\CLAVULANATE POTASSIUM
     Indication: LOCALISED INFECTION
     Route: 065
  4. DILTIAZEM. [Concomitant]
     Active Substance: DILTIAZEM

REACTIONS (8)
  - Upper respiratory tract infection [Unknown]
  - Infection [Unknown]
  - Dizziness [Unknown]
  - Feeling abnormal [Unknown]
  - Finger amputation [Unknown]
  - Localised infection [Unknown]
  - Nail bed infection [Unknown]
  - Headache [Unknown]

NARRATIVE: CASE EVENT DATE: 20200804
